FAERS Safety Report 25139459 (Version 1)
Quarter: 2025Q1

REPORT INFORMATION
  Report Type: Spontaneous
  Country: RU (occurrence: RU)
  Receive Date: 20250331
  Receipt Date: 20250331
  Transmission Date: 20250409
  Serious: Yes (Other)
  Sender: ROCHE
  Company Number: RU-ROCHE-10000237167

PATIENT
  Age: 8 Month
  Sex: Female

DRUGS (1)
  1. RISDIPLAM [Suspect]
     Active Substance: RISDIPLAM
     Indication: Spinal muscular atrophy
     Route: 065

REACTIONS (4)
  - Hypotension [Unknown]
  - Diaphragmatic operation [Unknown]
  - Oesophagogastric fundoplasty [Unknown]
  - Gastrostomy [Unknown]

NARRATIVE: CASE EVENT DATE: 20240917
